FAERS Safety Report 8835581 (Version 1)
Quarter: 2012Q4

REPORT INFORMATION
  Report Type: 
  Country: CA (occurrence: CA)
  Receive Date: 20121011
  Receipt Date: 20121011
  Transmission Date: 20130627
  Serious: Yes (Hospitalization)
  Sender: FDA-Public Use
  Company Number: CA-B.I. PHARMACEUTICALS,INC./RIDGEFIELD-2012-CN-02066CN

PATIENT
  Sex: Female

DRUGS (1)
  1. PRADAX [Suspect]

REACTIONS (1)
  - Myocardial infarction [Not Recovered/Not Resolved]
